FAERS Safety Report 6247924-0 (Version None)
Quarter: 2009Q2

REPORT INFORMATION
  Report Type: 
  Country: None (occurrence: None)
  Receive Date: 20090626
  Receipt Date: 20090615
  Transmission Date: 20091009
  Serious: Yes (Hospitalization, Other)
  Sender: FDA-Public Use
  Company Number: PHHY2009NO23738

PATIENT
  Sex: Female

DRUGS (3)
  1. VOLTAREN [Suspect]
     Dosage: UNK
     Route: 048
     Dates: start: 20090301, end: 20090301
  2. DICLOXACILLIN [Interacting]
     Indication: ERYSIPELAS
     Dosage: 2+2 WEEK
     Dates: start: 20090201, end: 20090201
  3. ANTIBIOTICS [Concomitant]

REACTIONS (8)
  - CHROMATURIA [None]
  - DRUG INTERACTION [None]
  - FATIGUE [None]
  - HEADACHE [None]
  - HEPATITIS CHOLESTATIC [None]
  - JAUNDICE [None]
  - NAUSEA [None]
  - PRURITUS [None]
